FAERS Safety Report 16829016 (Version 1)
Quarter: 2019Q3

REPORT INFORMATION
  Report Type: Spontaneous
  Country: US (occurrence: US)
  Receive Date: 20190919
  Receipt Date: 20190919
  Transmission Date: 20191005
  Serious: No
  Sender: FDA-Public Use
  Company Number: US-TEVA-2019-US-1109995

PATIENT
  Sex: Female

DRUGS (1)
  1. COPAXONE [Suspect]
     Active Substance: GLATIRAMER ACETATE
     Dosage: EVER OTHER DAY
     Route: 065

REACTIONS (3)
  - Fatigue [Unknown]
  - Hypoaesthesia [Unknown]
  - Pain in extremity [Unknown]
